FAERS Safety Report 9113792 (Version 1)
Quarter: 2013Q1

REPORT INFORMATION
  Report Type: Spontaneous
  Country: US (occurrence: US)
  Receive Date: 20130128
  Receipt Date: 20130128
  Transmission Date: 20140127
  Serious: Yes (Hospitalization)
  Sender: FDA-Public Use
  Company Number: US-ASTRAZENECA-2013SE03830

PATIENT
  Age: 72 Year
  Sex: Female
  Weight: 49.9 kg

DRUGS (4)
  1. ARIMIDEX [Suspect]
     Indication: BREAST CANCER
     Route: 048
     Dates: start: 201201, end: 201204
  2. TAMOXIFEN [Suspect]
     Indication: BREAST CANCER
     Route: 048
     Dates: start: 201210, end: 201212
  3. HYDROCODONE [Concomitant]
     Indication: BACK PAIN
  4. LORAZEPAM [Concomitant]
     Indication: SLEEP DISORDER

REACTIONS (8)
  - Stevens-Johnson syndrome [Unknown]
  - Depression [Unknown]
  - Anxiety [Unknown]
  - Feeling abnormal [Unknown]
  - Madarosis [Unknown]
  - Night sweats [Unknown]
  - Dry skin [Unknown]
  - Frequent bowel movements [Unknown]
